FAERS Safety Report 19228189 (Version 1)
Quarter: 2021Q2

REPORT INFORMATION
  Report Type: Spontaneous
  Country: CA (occurrence: CA)
  Receive Date: 20210506
  Receipt Date: 20210506
  Transmission Date: 20210717
  Serious: Yes (Death, Other)
  Sender: FDA-Public Use
  Company Number: CA-GLAXOSMITHKLINE-CACH2021024822

PATIENT

DRUGS (95)
  1. LEFLUNOMIDE. [Suspect]
     Active Substance: LEFLUNOMIDE
     Indication: PRODUCT USED FOR UNKNOWN INDICATION
     Dosage: UNK (MATERNAL DOSE: UNKNOWN)
     Route: 064
  2. RITUXIMAB. [Suspect]
     Active Substance: RITUXIMAB
     Indication: FOETAL EXPOSURE DURING PREGNANCY
     Dosage: UNK (MATERNAL DOSE: UNKNOWN)
     Route: 064
  3. ALENDRONIC ACID [Suspect]
     Active Substance: ALENDRONIC ACID
     Dosage: UNK (MATERNAL DOSE: UNKNOWN)
     Route: 064
  4. DESOXYMETHASONE [Suspect]
     Active Substance: DESOXIMETASONE
     Indication: FOETAL EXPOSURE DURING PREGNANCY
     Dosage: UNK (MATERNAL DOSE: UNKNOWN)
     Route: 064
  5. PREDNISONE. [Suspect]
     Active Substance: PREDNISONE
     Dosage: UNK (MATERNAL DOSE: UNKNOWN)
     Route: 064
  6. ARAVA [Suspect]
     Active Substance: LEFLUNOMIDE
     Indication: FOETAL EXPOSURE DURING PREGNANCY
     Dosage: UNK (MATERNAL DOSE: 20.0 MILLIGRAM)
     Route: 064
  7. REMICADE [Suspect]
     Active Substance: INFLIXIMAB
     Dosage: UNK (MATERNAL DOSE: UNKNOWN, SOLUTION FOR INFUSION)
     Route: 064
  8. SIMPONI [Suspect]
     Active Substance: GOLIMUMAB
     Indication: FOETAL EXPOSURE DURING PREGNANCY
     Dosage: UNK (MATERNAL DOSE: 50.0 MILLIGRAM)
     Route: 064
  9. STELARA [Suspect]
     Active Substance: USTEKINUMAB
     Indication: FOETAL EXPOSURE DURING PREGNANCY
     Dosage: UNK (MATERNAL DOSE: UNKNOWN, SOLUTION)
     Route: 064
  10. FOLIC ACID. [Suspect]
     Active Substance: FOLIC ACID
     Indication: FOETAL EXPOSURE DURING PREGNANCY
     Dosage: UNK (MATERNAL DOSE: 1.0 MILLIGRAM)
     Route: 064
  11. FOLIC ACID. [Suspect]
     Active Substance: FOLIC ACID
     Dosage: UNK (MATERNAL DOSE: 5.0 MILLIGRAM)
     Route: 064
  12. ALENDRONIC ACID [Suspect]
     Active Substance: ALENDRONIC ACID
     Dosage: UNK (MATERNAL DOSE: UNKNOWN)
     Route: 064
  13. ALENDRONIC ACID [Suspect]
     Active Substance: ALENDRONIC ACID
     Dosage: UNK (MATERNAL DOSE: UNKNOWN)
     Route: 064
  14. CORTISON (CORTISONE) [Suspect]
     Active Substance: CORTISONE ACETATE
     Dosage: UNK (MATERNAL DOSE: UNKNOWN, TABLET)
     Route: 064
  15. CETIRIZINE [Suspect]
     Active Substance: CETIRIZINE HYDROCHLORIDE
     Dosage: UNK (MATERNAL DOSE: UNKNOWN)
     Route: 064
  16. DESOXYMETHASONE [Suspect]
     Active Substance: DESOXIMETASONE
     Dosage: UNK (MATERNAL DOSE: UNKNOWN)
     Route: 064
  17. HYDROXYCHLOROQUINE [Suspect]
     Active Substance: HYDROXYCHLOROQUINE
     Dosage: UNK (MATERNAL DOSE: UNKNOWN)
     Route: 064
  18. HYDROXYCHLOROQUINE [Suspect]
     Active Substance: HYDROXYCHLOROQUINE
     Dosage: UNK (MATERNAL DOSE: 400.0 MILLIGRAM, QD)
     Route: 064
  19. ACTEMRA [Suspect]
     Active Substance: TOCILIZUMAB
     Indication: FOETAL EXPOSURE DURING PREGNANCY
     Dosage: UNK (MATERNAL DOSE: UNKNOWN)
     Route: 064
  20. ARAVA [Suspect]
     Active Substance: LEFLUNOMIDE
     Dosage: UNK (MATERNAL DOSE: MATERNAL DOSE: UNKNOWN)
     Route: 064
  21. ENBREL [Suspect]
     Active Substance: ETANERCEPT
     Indication: FOETAL EXPOSURE DURING PREGNANCY
     Dosage: UNK (MATERNAL DOSE: 50.0 MILLIGRAM)
     Route: 064
  22. OTEZLA [Suspect]
     Active Substance: APREMILAST
     Dosage: UNK (MATERNAL DOSE: UNKNOWN)
     Route: 064
  23. OTEZLA [Suspect]
     Active Substance: APREMILAST
     Dosage: UNK (MATERNAL DOSE: 3.0 MILLIGRAM 2 EVERY 1 DAYS)
     Route: 064
  24. PHTHALYLSULFATHIAZOLE [Suspect]
     Active Substance: PHTHALYLSULFATHIAZOLE
     Indication: FOETAL EXPOSURE DURING PREGNANCY
     Dosage: UNK (MATERNAL DOSE: UNKNOWN)
     Route: 064
  25. REMICADE [Suspect]
     Active Substance: INFLIXIMAB
     Indication: FOETAL EXPOSURE DURING PREGNANCY
     Dosage: UNK (MATERNAL DOSE: UNKNOWN)
     Route: 064
  26. XELJANZ [Suspect]
     Active Substance: TOFACITINIB CITRATE
     Dosage: UNK (MATERNAL DOSE: UNKNOWN)
     Route: 064
  27. TOCILIZUMAB. [Suspect]
     Active Substance: TOCILIZUMAB
     Indication: FOETAL EXPOSURE DURING PREGNANCY
     Dosage: UNK (MATERNAL DOSE: UNKNOWN)
     Route: 064
  28. CODEINE [Concomitant]
     Active Substance: CODEINE
     Indication: FOETAL EXPOSURE DURING PREGNANCY
     Dosage: UNK (MATERNAL DOSE: UNKNOWN)
     Route: 064
  29. DICLOFENAC SODIUM. [Suspect]
     Active Substance: DICLOFENAC SODIUM
     Indication: FOETAL EXPOSURE DURING PREGNANCY
     Dosage: UNK (MATERNAL DOSE: UNKNOWN)
     Route: 065
  30. ADALIMUMAB [Suspect]
     Active Substance: ADALIMUMAB
     Indication: FOETAL EXPOSURE DURING PREGNANCY
     Dosage: UNK (MATERNAL DOSE: 40.0 MILLIGRAM)
     Route: 064
  31. FOLIC ACID. [Suspect]
     Active Substance: FOLIC ACID
     Dosage: UNK (MATERNAL DOSE: UNKNOWN)
     Route: 064
  32. FOLIC ACID. [Suspect]
     Active Substance: FOLIC ACID
     Dosage: UNK (MATERNAL DOSE: 5.0 MILLIGRAM)
     Route: 064
  33. METHOTREXATE. [Suspect]
     Active Substance: METHOTREXATE
     Indication: FOETAL EXPOSURE DURING PREGNANCY
     Dosage: UNK(MATERNAL DOSE: 25.0 MILLIGRAM)
     Route: 064
  34. CORTISON (CORTISONE) [Suspect]
     Active Substance: CORTISONE ACETATE
     Dosage: UNK (MATERNAL DOSE: UNKNOWN)
     Route: 064
  35. FOSAMAX [Suspect]
     Active Substance: ALENDRONATE SODIUM
     Indication: FOETAL EXPOSURE DURING PREGNANCY
     Dosage: UNK (MATERNAL DOSE: UNKNOWN)
     Route: 064
  36. GOLIMUMAB [Suspect]
     Active Substance: GOLIMUMAB
     Indication: FOETAL EXPOSURE DURING PREGNANCY
     Dosage: UNK (MATERNAL DOSE: UNKNOWN)
     Route: 064
  37. SIMPONI [Suspect]
     Active Substance: GOLIMUMAB
     Dosage: UNK (MATERNAL DOSE: UNKNOWN)
     Route: 064
  38. TOFACITINIB CITRATE [Concomitant]
     Active Substance: TOFACITINIB CITRATE
     Indication: FOETAL EXPOSURE DURING PREGNANCY
     Dosage: UNK (MATERNAL DOSE: 5.0 MILLIGRAM, 1 EVERY 1 WEEK)
     Route: 064
  39. FOLIC ACID. [Suspect]
     Active Substance: FOLIC ACID
     Dosage: UNK (MATERNAL DOSE: 25.0 MILLIGRAM)
     Route: 064
  40. RITUXIMAB. [Suspect]
     Active Substance: RITUXIMAB
     Dosage: UNK (MATERNAL DOSE: UNKNOWN)
     Route: 064
  41. METHOTREXATE. [Suspect]
     Active Substance: METHOTREXATE
     Dosage: UNK (MATERNAL DOSE: UNKNOWN)
     Route: 064
  42. HYDROXYCHLOROQUINE [Suspect]
     Active Substance: HYDROXYCHLOROQUINE
     Indication: FOETAL EXPOSURE DURING PREGNANCY
     Dosage: UNK (MATERNAL DOSE: 400.0 MILLIGRAM, QD)
     Route: 064
  43. SULFASALAZINE. [Suspect]
     Active Substance: SULFASALAZINE
     Dosage: UNK (MATERNAL DOSE: 500.0 MILLIGRAM)
     Route: 064
  44. HUMIRA [Suspect]
     Active Substance: ADALIMUMAB
     Dosage: UNK (MATERNAL DOSE: 40.0 MILLIGRAM, SOLUTION)
     Route: 064
  45. OTEZLA [Suspect]
     Active Substance: APREMILAST
     Dosage: UNK (MATERNAL DOSE: 3.0 MILLIGRAM 2 EVERY 1 DAYS)
     Route: 064
  46. REMICADE [Suspect]
     Active Substance: INFLIXIMAB
     Dosage: UNK (MATERNAL DOSE: UNKNOWN, SOLUTION FOR INFUSION)
     Route: 064
  47. WINPRED [Suspect]
     Active Substance: PREDNISONE
     Indication: FOETAL EXPOSURE DURING PREGNANCY
     Dosage: UNK (MATERNAL DOSE: UNKNOWN)
     Route: 064
  48. LISINOPRIL. [Concomitant]
     Active Substance: LISINOPRIL
     Indication: FOETAL EXPOSURE DURING PREGNANCY
     Dosage: UNK (MATERNAL DOSE: UNKNOWN)
     Route: 064
  49. VITAMIN D3 [Concomitant]
     Active Substance: CHOLECALCIFEROL
     Indication: FOETAL EXPOSURE DURING PREGNANCY
     Dosage: UNK (MATERNAL DOSE: UNKNOWN)
     Route: 064
  50. ACETAMINOPHEN. [Suspect]
     Active Substance: ACETAMINOPHEN
     Indication: FOETAL EXPOSURE DURING PREGNANCY
     Dosage: UNK (MATERNAL DOSE: UNKNOWN)
     Route: 064
  51. METHOTREXATE. [Suspect]
     Active Substance: METHOTREXATE
     Dosage: UNK (MATERNAL DOSE: 25.0 MILLIGRAM)
     Route: 064
  52. CORTISON (CORTISONE) [Suspect]
     Active Substance: CORTISONE ACETATE
     Dosage: UNK (MATERNAL DOSE: 25.0 MILLIGRAM, OINTMENT)
     Route: 064
  53. HYDROXYCHLOROQUINE [Suspect]
     Active Substance: HYDROXYCHLOROQUINE
     Dosage: UNK (MATERNAL DOSE: 400.0 MILLIGRAM)
     Route: 064
  54. PREDNISONE. [Suspect]
     Active Substance: PREDNISONE
     Dosage: UNK (MATERNAL DOSE: 25.0 MILLIGRAM)
     Route: 064
  55. SULFASALAZINE. [Suspect]
     Active Substance: SULFASALAZINE
     Dosage: UNK (MATERNAL DOSE: 500.0 MILLIGRAM)
     Route: 064
  56. XELJANZ [Suspect]
     Active Substance: TOFACITINIB CITRATE
     Dosage: UNK (MATERNAL DOSE: 5.0 MILLIGRAM)
     Route: 064
  57. TOCILIZUMAB. [Suspect]
     Active Substance: TOCILIZUMAB
     Dosage: UNK (MATERNAL DOSE: UNKNOWN)
     Route: 064
  58. PSEUDOEPHEDRINE HYDROCHLORIDE. [Suspect]
     Active Substance: PSEUDOEPHEDRINE HYDROCHLORIDE
     Indication: FOETAL EXPOSURE DURING PREGNANCY
     Dosage: UNK (MATERNAL DOSE: UNKNOWN)
     Route: 064
  59. CORTISON (CORTISONE) [Suspect]
     Active Substance: CORTISONE ACETATE
     Dosage: UNK (MATERNAL DOSE: 25.0 MILLIGRAM, OINTMENT)
     Route: 064
  60. CETIRIZINE [Suspect]
     Active Substance: CETIRIZINE HYDROCHLORIDE
     Dosage: UNK (MATERNAL DOSE: 10.0 MILLIGRAM)
     Route: 064
  61. DESOXYMETHASONE [Suspect]
     Active Substance: DESOXIMETASONE
     Dosage: UNK (MATERNAL DOSE: UNKNOWN)
     Route: 064
  62. HYDROXYCHLOROQUINE [Suspect]
     Active Substance: HYDROXYCHLOROQUINE
     Dosage: UNK (MATERNAL DOSE: 400.0 MILLIGRAM)
     Route: 064
  63. PREDNISONE. [Suspect]
     Active Substance: PREDNISONE
     Dosage: UNK (MATERNAL DOSE: UNKNOWN)
     Route: 064
  64. CIMZIA [Suspect]
     Active Substance: CERTOLIZUMAB PEGOL
     Indication: FOETAL EXPOSURE DURING PREGNANCY
     Dosage: UNK (MATERNAL DOSE: UNKNOWN)
     Route: 064
  65. HUMIRA [Suspect]
     Active Substance: ADALIMUMAB
     Indication: FOETAL EXPOSURE DURING PREGNANCY
     Dosage: UNK (MATERNAL DOSE: 4.0 MILLIGRAM)
     Route: 064
  66. ORENCIA [Suspect]
     Active Substance: ABATACEPT
     Dosage: UNK (MATERNAL DOSE: UNKNOWN)
     Route: 064
  67. OTEZLA [Suspect]
     Active Substance: APREMILAST
     Indication: FOETAL EXPOSURE DURING PREGNANCY
     Dosage: UNK (MATERNAL DOSE: UNKNOWN)
     Route: 064
  68. PHTHALYLSULFATHIAZOLE [Suspect]
     Active Substance: PHTHALYLSULFATHIAZOLE
     Dosage: UNK (MATERNAL DOSE: UNKNOWN)
     Route: 064
  69. SALAZOPYRIN [Concomitant]
     Active Substance: SULFASALAZINE
     Indication: FOETAL EXPOSURE DURING PREGNANCY
     Dosage: UNK (MATERNAL DOSE: UNKNOWN)
     Route: 064
  70. DICLOFENAC SODIUM. [Suspect]
     Active Substance: DICLOFENAC SODIUM
     Dosage: UNK (MATERNAL DOSE: 50.0 MILLIGRAM)
     Route: 065
  71. DIPHENHYDRAMINE. [Suspect]
     Active Substance: DIPHENHYDRAMINE
     Indication: FOETAL EXPOSURE DURING PREGNANCY
     Dosage: UNK (MATERNAL DOSE: UNKNOWN)
     Route: 064
  72. CETIRIZINE [Suspect]
     Active Substance: CETIRIZINE HYDROCHLORIDE
     Dosage: UNK (MATERNAL DOSE: UNKNOWN)
     Route: 064
  73. PREDNISONE. [Suspect]
     Active Substance: PREDNISONE
     Indication: FOETAL EXPOSURE DURING PREGNANCY
     Dosage: UNK (MATERNAL DOSE: 40.0 MILLIGRAM)
     Route: 064
  74. SULFASALAZINE. [Suspect]
     Active Substance: SULFASALAZINE
     Indication: FOETAL EXPOSURE DURING PREGNANCY
     Dosage: UNK (MATERNAL DOSE: 1000.0 MILLIGRA)
     Route: 064
  75. SULFASALAZINE. [Suspect]
     Active Substance: SULFASALAZINE
     Dosage: UNK (MATERNAL DOSE: 1000.0 MILLIGRA)
     Route: 064
  76. APO?PREDNISONE [Suspect]
     Active Substance: PREDNISONE
     Indication: FOETAL EXPOSURE DURING PREGNANCY
     Dosage: UNK (MATERNAL DOSE: 40.0 MILLIGRAM)
     Route: 064
  77. REMICADE [Suspect]
     Active Substance: INFLIXIMAB
     Dosage: UNK (MATERNAL DOSE: UNKNOWN, POWDER FOR INJECTION)
     Route: 064
  78. CAFFEINE. [Concomitant]
     Active Substance: CAFFEINE
     Indication: FOETAL EXPOSURE DURING PREGNANCY
     Dosage: UNK (MATERNAL DOSE: UNKNOWN)
     Route: 064
  79. ERELZI [Suspect]
     Active Substance: ETANERCEPT-SZZS
     Indication: FOETAL EXPOSURE DURING PREGNANCY
     Dosage: UNK (MATERNAL DOSE: UNKNOWN)
     Route: 064
  80. FOLIC ACID. [Suspect]
     Active Substance: FOLIC ACID
     Dosage: UNK (MATERNAL DOSE: 1.0 MILLIGRAM)
     Route: 064
  81. RITUXIMAB. [Suspect]
     Active Substance: RITUXIMAB
     Dosage: UNK (MATERNAL DOSE: UNKNOWN)
     Route: 064
  82. ALENDRONIC ACID [Suspect]
     Active Substance: ALENDRONIC ACID
     Indication: FOETAL EXPOSURE DURING PREGNANCY
     Dosage: UNK (MATERNAL DOSE: UNKNOWN)
     Route: 064
  83. CORTISON (CORTISONE) [Suspect]
     Active Substance: CORTISONE ACETATE
     Indication: FOETAL EXPOSURE DURING PREGNANCY
     Dosage: UNK (MATERNAL DOSE: UNKNOWN, TABLET)
     Route: 064
  84. CORTISON (CORTISONE) [Suspect]
     Active Substance: CORTISONE ACETATE
     Dosage: UNK (MATERNAL DOSE: 25.0 MILLIGRAM, OINTMENT)
     Route: 064
  85. CETIRIZINE [Suspect]
     Active Substance: CETIRIZINE HYDROCHLORIDE
     Indication: FOETAL EXPOSURE DURING PREGNANCY
     Dosage: UNK (MATERNAL DOSE: UNKNOWN)
     Route: 064
  86. DESOXYMETHASONE [Suspect]
     Active Substance: DESOXIMETASONE
     Dosage: UNK (MATERNAL DOSE: UNKNOWN)
     Route: 064
  87. HYDROXYCHLOROQUINE [Suspect]
     Active Substance: HYDROXYCHLOROQUINE
     Dosage: UNK (MATERNAL DOSE: 400.0 MILLIGRAM, QD)
     Route: 064
  88. HYDROXYCHLOROQUINE [Suspect]
     Active Substance: HYDROXYCHLOROQUINE
     Dosage: UNK (MATERNAL DOSE: 400.0 MILLIGRAM, QD)
     Route: 064
  89. HYDROXYCHLOROQUINE [Suspect]
     Active Substance: HYDROXYCHLOROQUINE
     Dosage: UNK (MATERNAL DOSE: 400.0 MILLIGRAM, QD)
     Route: 064
  90. CIMZIA [Suspect]
     Active Substance: CERTOLIZUMAB PEGOL
     Dosage: UNK (MATERNAL DOSE: UNKNOWN,  SOLUTION FOR INJECTION IN PRE?FILLED SYRINGE)
     Route: 064
  91. FOSAMAX [Suspect]
     Active Substance: ALENDRONATE SODIUM
     Dosage: UNK (MATERNAL DOSE: UNKNOWN)
     Route: 064
  92. ORENCIA [Suspect]
     Active Substance: ABATACEPT
     Indication: FOETAL EXPOSURE DURING PREGNANCY
     Dosage: UNK (MATERNAL DOSE: UNKNOWN)
     Route: 064
  93. SOLU?MEDROL [Suspect]
     Active Substance: METHYLPREDNISOLONE SODIUM SUCCINATE
     Indication: FOETAL EXPOSURE DURING PREGNANCY
     Dosage: UNK (MATERNAL DOSE: UNKNOWN)
     Route: 064
  94. XELJANZ [Suspect]
     Active Substance: TOFACITINIB CITRATE
     Indication: FOETAL EXPOSURE DURING PREGNANCY
     Dosage: UNK (MATERNAL DOSE: 5.0 MILLIGRAM, 1 EVERY 1 DAYS)
     Route: 064
  95. IBUPROFEN. [Concomitant]
     Active Substance: IBUPROFEN
     Indication: FOETAL EXPOSURE DURING PREGNANCY
     Dosage: UNK (MATERNAL DOSE: UNKNOWN)
     Route: 064

REACTIONS (2)
  - Exposure during pregnancy [Fatal]
  - Death neonatal [Fatal]
